FAERS Safety Report 8987075 (Version 1)
Quarter: 2012Q4

REPORT INFORMATION
  Report Type: 
  Country: IE (occurrence: IE)
  Receive Date: 20121226
  Receipt Date: 20121226
  Transmission Date: 20130627
  Serious: Yes (Hospitalization)
  Sender: FDA-Public Use
  Company Number: IE-BAXTER-2012BAX027930

PATIENT
  Age: 65 Year
  Sex: Male

DRUGS (3)
  1. WATER FOR INJECTION [Suspect]
     Indication: JOINT INFECTION
     Route: 042
     Dates: start: 20121211, end: 20121214
  2. 0.9%NACL AND D5W [Suspect]
     Indication: JOINT INFECTION
     Route: 042
     Dates: start: 20121211, end: 20121214
  3. VANCOMYCIN [Suspect]
     Indication: JOINT INFECTION
     Route: 042
     Dates: start: 20121211, end: 20121214

REACTIONS (3)
  - Blood creatinine increased [Not Recovered/Not Resolved]
  - Renal failure [Not Recovered/Not Resolved]
  - Antibiotic level above therapeutic [Not Recovered/Not Resolved]
